FAERS Safety Report 17731834 (Version 1)
Quarter: 2020Q2

REPORT INFORMATION
  Report Type: Spontaneous
  Country: CN (occurrence: CN)
  Receive Date: 20200501
  Receipt Date: 20200501
  Transmission Date: 20200714
  Serious: Yes (Other)
  Sender: FDA-Public Use
  Company Number: CN-ROCHE-2590587

PATIENT
  Age: 66 Year
  Sex: Male
  Weight: 54.5 kg

DRUGS (5)
  1. OXALIPLATIN. [Suspect]
     Active Substance: OXALIPLATIN
     Indication: ADENOCARCINOMA OF COLON
     Route: 041
     Dates: start: 20200327
  2. CALCIUM LEVOFOLINATE [Suspect]
     Active Substance: LEVOLEUCOVORIN CALCIUM
     Indication: ADENOCARCINOMA OF COLON
     Route: 041
     Dates: start: 20200327
  3. AVASTIN [Suspect]
     Active Substance: BEVACIZUMAB
     Indication: ADENOCARCINOMA OF COLON
     Route: 041
     Dates: start: 20200327
  4. FLOXURIDINE. [Suspect]
     Active Substance: FLOXURIDINE
     Indication: ADENOCARCINOMA OF COLON
     Route: 042
     Dates: start: 20200327
  5. FLOXURIDINE. [Suspect]
     Active Substance: FLOXURIDINE
     Route: 041
     Dates: start: 20200327

REACTIONS (1)
  - Bone marrow failure [Recovering/Resolving]

NARRATIVE: CASE EVENT DATE: 20200330
